FAERS Safety Report 4396965-7 (Version None)
Quarter: 2004Q2

REPORT INFORMATION
  Report Type: 
  Country: None (occurrence: None)
  Receive Date: 20040621
  Receipt Date: 20031231
  Transmission Date: 20050107
  Serious: Yes (Death)
  Sender: FDA-Public Use
  Company Number: USA-2003-0012370

PATIENT
  Age: 52 Year
  Sex: Male

DRUGS (5)
  1. OXYCODONE HCL [Suspect]
     Dosage: UNK UNK , UNK; UNKNOWN
     Route: 065
  2. ROXICET [Concomitant]
  3. DOXEPIN HCL [Concomitant]
  4. CLONAZEPAM [Concomitant]
  5. DEPAKOTE [Concomitant]

REACTIONS (2)
  - ACCIDENTAL OVERDOSE [None]
  - MULTIPLE DRUG OVERDOSE [None]
